FAERS Safety Report 11991576 (Version 4)
Quarter: 2016Q2

REPORT INFORMATION
  Report Type: Spontaneous
  Country: US (occurrence: US)
  Receive Date: 20160203
  Receipt Date: 20160513
  Transmission Date: 20160815
  Serious: No
  Sender: FDA-Public Use
  Company Number: US-JNJFOC-20160105083

PATIENT
  Age: 37 Year
  Sex: Male

DRUGS (8)
  1. INVEGA SUSTENNA [Suspect]
     Active Substance: PALIPERIDONE PALMITATE
     Indication: BIPOLAR DISORDER
     Route: 030
     Dates: start: 20101129
  2. INVEGA [Suspect]
     Active Substance: PALIPERIDONE
     Indication: BIPOLAR DISORDER
     Dosage: 6 MG -12 MG
     Route: 048
     Dates: start: 20100609, end: 20101129
  3. INVEGA SUSTENNA [Suspect]
     Active Substance: PALIPERIDONE PALMITATE
     Indication: THROMBOANGIITIS OBLITERANS
     Route: 030
     Dates: start: 20101129
  4. INVEGA SUSTENNA [Suspect]
     Active Substance: PALIPERIDONE PALMITATE
     Indication: THROMBOANGIITIS OBLITERANS
     Route: 030
     Dates: start: 20110110, end: 20110110
  5. INVEGA SUSTENNA [Suspect]
     Active Substance: PALIPERIDONE PALMITATE
     Indication: THROMBOANGIITIS OBLITERANS
     Route: 030
     Dates: start: 20100609
  6. INVEGA SUSTENNA [Suspect]
     Active Substance: PALIPERIDONE PALMITATE
     Indication: BIPOLAR DISORDER
     Route: 030
     Dates: start: 20110110, end: 20110110
  7. INVEGA [Suspect]
     Active Substance: PALIPERIDONE
     Indication: BIPOLAR DISORDER
     Dosage: 6 MG -12 MG INTERMITTENT USE
     Route: 048
     Dates: start: 20110110, end: 201108
  8. INVEGA SUSTENNA [Suspect]
     Active Substance: PALIPERIDONE PALMITATE
     Indication: BIPOLAR DISORDER
     Route: 030
     Dates: start: 20100609

REACTIONS (5)
  - Injection site pain [Recovered/Resolved]
  - Gynaecomastia [Unknown]
  - Emotional disorder [Unknown]
  - Sedation [Recovered/Resolved]
  - Myalgia [Recovered/Resolved]

NARRATIVE: CASE EVENT DATE: 201007
